FAERS Safety Report 9648292 (Version 1)
Quarter: 2013Q4

REPORT INFORMATION
  Report Type: Spontaneous
  Country: US (occurrence: None)
  Receive Date: 20131025
  Receipt Date: 20131025
  Transmission Date: 20140711
  Serious: Yes (Hospitalization)
  Sender: FDA-Public Use
  Company Number: None

PATIENT
  Age: 89 Year
  Sex: Female
  Weight: 59.42 kg

DRUGS (5)
  1. VANTIN [Suspect]
     Indication: URINARY TRACT INFECTION
     Dates: start: 20130720, end: 20130724
  2. NORVASC [Concomitant]
  3. LIPITOR [Concomitant]
  4. SYNTHROID [Concomitant]
  5. LATANOPROST [Concomitant]

REACTIONS (1)
  - Clostridium difficile infection [None]
